FAERS Safety Report 9095132 (Version 1)
Quarter: 2013Q1

REPORT INFORMATION
  Report Type: Spontaneous
  Country: US (occurrence: None)
  Receive Date: 20130123
  Receipt Date: 20130123
  Transmission Date: 20140127
  Serious: Yes (Other)
  Sender: FDA-Public Use
  Company Number: 2013SA001865

PATIENT
  Sex: Female

DRUGS (1)
  1. CAPSAICIN HP CREME / UNKNOWN / UNKNOWN [Suspect]
     Indication: ARTHROPATHY
     Dates: start: 20130108, end: 20130108

REACTIONS (1)
  - Application site burn [None]
